FAERS Safety Report 8047706-3 (Version None)
Quarter: 2012Q1

REPORT INFORMATION
  Report Type: 
  Country: None (occurrence: None)
  Receive Date: 20120116
  Receipt Date: 20120111
  Transmission Date: 20120608
  Serious: No
  Sender: FDA-Public Use
  Company Number: US-BAYER-2012-004214

PATIENT
  Age: 54 Year
  Sex: Female

DRUGS (1)
  1. MAGNEVIST [Suspect]
     Indication: NUCLEAR MAGNETIC RESONANCE IMAGING
     Dosage: 20 ML, UNK
     Route: 042
     Dates: start: 20120111, end: 20120111

REACTIONS (6)
  - ORAL DISCOMFORT [None]
  - DIARRHOEA [None]
  - EYE SWELLING [None]
  - FEELING ABNORMAL [None]
  - URTICARIA [None]
  - HYPOAESTHESIA ORAL [None]
